FAERS Safety Report 7681589-6 (Version None)
Quarter: 2011Q3

REPORT INFORMATION
  Report Type: 
  Country: None (occurrence: None)
  Receive Date: 20110812
  Receipt Date: 20110801
  Transmission Date: 20111222
  Serious: Yes (Other)
  Sender: FDA-Public Use
  Company Number: PHHY2011BR70227

PATIENT
  Sex: Male

DRUGS (2)
  1. DIOVAN [Suspect]
     Dosage: 80 MG,
  2. LESCOL XL [Suspect]
     Dosage: 80 MG,

REACTIONS (2)
  - NEOPLASM MALIGNANT [None]
  - BLOOD PRESSURE INCREASED [None]
